APPROVED DRUG PRODUCT: VIJOICE
Active Ingredient: ALPELISIB
Strength: 125MG
Dosage Form/Route: TABLET;ORAL
Application: N215039 | Product #002
Applicant: NOVARTIS PHARMACEUTICALS CORP
Approved: Apr 5, 2022 | RLD: Yes | RS: No | Type: RX

PATENTS:
Patent 12427141 | Expires: Feb 17, 2037
Patent 11433059 | Expires: Feb 17, 2037
Patent 8476268 | Expires: Sep 10, 2029
Patent 8227462 | Expires: Apr 29, 2033

EXCLUSIVITY:
Code: ODE-396 | Date: Apr 5, 2029